FAERS Safety Report 8607198 (Version 3)
Quarter: 2013Q4

REPORT INFORMATION
  Report Type: Spontaneous
  Country: US (occurrence: US)
  Receive Date: 20120611
  Receipt Date: 20131015
  Transmission Date: 20140711
  Serious: Yes (Disabling, Other)
  Sender: FDA-Public Use
  Company Number: US-ASTRAZENECA-2012SE34560

PATIENT
  Sex: Female
  Weight: 140.6 kg

DRUGS (27)
  1. NEXIUM [Suspect]
     Indication: DYSPEPSIA
     Route: 048
     Dates: start: 20080915
  2. NEXIUM [Suspect]
     Indication: GASTROOESOPHAGEAL REFLUX DISEASE
     Route: 048
     Dates: start: 20080915
  3. NEXIUM [Suspect]
     Indication: DYSPEPSIA
     Route: 048
     Dates: start: 2008, end: 2012
  4. NEXIUM [Suspect]
     Indication: GASTROOESOPHAGEAL REFLUX DISEASE
     Route: 048
     Dates: start: 2008, end: 2012
  5. OMEPRAZOLE [Suspect]
     Route: 048
  6. OMEPRAZOLE [Suspect]
     Route: 048
     Dates: start: 2012
  7. FLUOXETINE [Concomitant]
  8. VITAMIN D [Concomitant]
  9. SIMVASTATIN [Concomitant]
     Indication: BLOOD CHOLESTEROL ABNORMAL
     Route: 048
     Dates: start: 20080814
  10. SIMVASTATIN [Concomitant]
     Indication: BLOOD CHOLESTEROL ABNORMAL
     Route: 048
     Dates: start: 20100909
  11. SIMVASTATIN [Concomitant]
     Indication: BLOOD CHOLESTEROL ABNORMAL
  12. HYDROCHLOROTHIAZIDE [Concomitant]
  13. TIZANIDINE HCL [Concomitant]
  14. VITAMIN B-12 [Concomitant]
     Dosage: 500 MG
  15. MELOXICAM [Concomitant]
  16. BUPROPION [Concomitant]
     Route: 048
     Dates: start: 20100825
  17. LEVOTHYROXINE SODIUM [Concomitant]
  18. GABAPENTIN [Concomitant]
  19. PREVACID [Concomitant]
     Dosage: 2 TIMES A DAY
  20. CELEBREX [Concomitant]
     Route: 048
     Dates: start: 20090511
  21. CYCLOBENZAPRINE [Concomitant]
     Dosage: 1 TABLET TWICE A DAY DURING THE DAY AND THEN TAKE 2 TABLETS AT NIGHT
     Route: 048
     Dates: start: 20100203
  22. TRAZODONE [Concomitant]
     Route: 048
     Dates: start: 20090618
  23. ALENDRONATE [Concomitant]
     Route: 048
     Dates: start: 20081112
  24. NAPROXEN [Concomitant]
     Indication: PAIN
     Route: 048
     Dates: start: 20080807
  25. NAPROXEN [Concomitant]
     Indication: PAIN
     Route: 048
     Dates: start: 20080915
  26. TRIMETHOPRIM/SULFA [Concomitant]
     Dosage: 800-160 MG, TWICE A DAY
     Route: 048
     Dates: start: 20080807
  27. PREDNISONE [Concomitant]
     Route: 048
     Dates: start: 20080925

REACTIONS (8)
  - Neoplasm malignant [Unknown]
  - Mental disorder [Unknown]
  - Osteoporosis [Unknown]
  - Arthritis [Unknown]
  - Bone disorder [Unknown]
  - Fracture [Unknown]
  - Pain in extremity [Unknown]
  - Depression [Unknown]
